FAERS Safety Report 14941453 (Version 2)
Quarter: 2018Q2

REPORT INFORMATION
  Report Type: Spontaneous
  Country: US (occurrence: US)
  Receive Date: 20180526
  Receipt Date: 20180613
  Transmission Date: 20180711
  Serious: Yes (Other)
  Sender: FDA-Public Use
  Company Number: US-TEVA-2018-US-896589

PATIENT
  Age: 44 Year
  Sex: Female

DRUGS (2)
  1. QUASENSE [Concomitant]
     Active Substance: ETHINYL ESTRADIOL\LEVONORGESTREL
  2. COPAXONE [Suspect]
     Active Substance: GLATIRAMER ACETATE
     Dosage: STRENGTH UNKNOWN
     Route: 065

REACTIONS (1)
  - Multiple sclerosis relapse [Unknown]
